FAERS Safety Report 16289742 (Version 1)
Quarter: 2019Q2

REPORT INFORMATION
  Report Type: Spontaneous
  Country: BR (occurrence: BR)
  Receive Date: 20190509
  Receipt Date: 20190509
  Transmission Date: 20190711
  Serious: Yes (Other)
  Sender: FDA-Public Use
  Company Number: BR-TEVA-2019-BR-1047637

PATIENT
  Age: 51 Year
  Sex: Female
  Weight: 63.5 kg

DRUGS (11)
  1. PANTOPRAZOLE [Concomitant]
     Active Substance: PANTOPRAZOLE
     Dosage: 40 DAY
  2. OSTEONUTRI [Concomitant]
  3. FOLIC ACID. [Concomitant]
     Active Substance: FOLIC ACID
     Dosage: 5 MG PER WEEK
  4. PRAVASTATIN. [Concomitant]
     Active Substance: PRAVASTATIN
     Dosage: 10?LATE
  5. VITAMIN D NOS [Concomitant]
     Active Substance: VITAMIN D NOS
     Dosage: 7000 WEEKLY AND 20BI?NIGHT
  6. ISONIAZID. [Concomitant]
     Active Substance: ISONIAZID
     Dosage: 300  DAILY;
  7. BRINTELLIX [Concomitant]
     Active Substance: VORTIOXETINE HYDROBROMIDE
     Dosage: 10 NIGHT
  8. RIVOTRIL [Concomitant]
     Active Substance: CLONAZEPAM
     Dosage: 2 NIGHT
  9. MAREVAN [Concomitant]
     Active Substance: WARFARIN SODIUM
     Dosage: 7.5 EVENING
  10. TEVAMETHO 25 MG [Suspect]
     Active Substance: METHOTREXATE
     Indication: RHEUMATOID ARTHRITIS
     Route: 058
  11. REUQUINOL [Concomitant]
     Active Substance: HYDROXYCHLOROQUINE SULFATE
     Dosage: 400 NIGHT

REACTIONS (3)
  - Nausea [Not Recovered/Not Resolved]
  - Drug-induced liver injury [Unknown]
  - Gastritis [Unknown]
